FAERS Safety Report 16962891 (Version 1)
Quarter: 2019Q4

REPORT INFORMATION
  Report Type: Spontaneous
  Country: CA (occurrence: CA)
  Receive Date: 20191025
  Receipt Date: 20191025
  Transmission Date: 20200122
  Serious: Yes (Other)
  Sender: FDA-Public Use
  Company Number: CA-JNJFOC-20191025577

PATIENT
  Age: 7 Decade
  Sex: Female
  Weight: 64.92 kg

DRUGS (2)
  1. TYLENOL [Concomitant]
     Active Substance: ACETAMINOPHEN
     Indication: PREMEDICATION
     Route: 065
  2. REMICADE [Suspect]
     Active Substance: INFLIXIMAB
     Indication: RHEUMATOID ARTHRITIS
     Route: 042
     Dates: end: 20190823

REACTIONS (3)
  - Surgery [Unknown]
  - Fatigue [Unknown]
  - Feeling cold [Unknown]

NARRATIVE: CASE EVENT DATE: 201901
